FAERS Safety Report 19620786 (Version 1)
Quarter: 2021Q3

REPORT INFORMATION
  Report Type: Spontaneous
  Country: SE (occurrence: SE)
  Receive Date: 20210728
  Receipt Date: 20210728
  Transmission Date: 20211014
  Serious: Yes (Other)
  Sender: FDA-Public Use
  Company Number: SE-ALKEM LABORATORIES LIMITED-SE-ALKEM-2020-04654

PATIENT
  Sex: Male

DRUGS (1)
  1. FINGOLIMOD. [Suspect]
     Active Substance: FINGOLIMOD
     Indication: RELAPSING-REMITTING MULTIPLE SCLEROSIS
     Dosage: UNK
     Route: 065

REACTIONS (6)
  - Immune reconstitution inflammatory syndrome [Unknown]
  - Lymphopenia [Recovered/Resolved]
  - Hyperproteinaemia [Unknown]
  - Multiple sclerosis relapse [Recovered/Resolved]
  - Encephalitis [Recovered/Resolved]
  - Dysarthria [Unknown]
